FAERS Safety Report 12140760 (Version 1)
Quarter: 2016Q1

REPORT INFORMATION
  Report Type: Spontaneous
  Country: CA (occurrence: CA)
  Receive Date: 20160303
  Receipt Date: 20160303
  Transmission Date: 20160526
  Serious: Yes (Other)
  Sender: FDA-Public Use
  Company Number: CA-TEVA-639542ACC

PATIENT
  Age: 86 Year
  Sex: Female

DRUGS (3)
  1. CYTOMEL [Concomitant]
     Active Substance: LIOTHYRONINE SODIUM
  2. TEVA-VENLAFAXINE XR [Suspect]
     Active Substance: VENLAFAXINE HYDROCHLORIDE
     Indication: DEPRESSION
     Dosage: 150 MILLIGRAM DAILY;
     Route: 048
  3. TEVA-ROSUVASTATIN [Concomitant]

REACTIONS (4)
  - Depression [Unknown]
  - Product substitution issue [Unknown]
  - Disturbance in attention [Unknown]
  - Memory impairment [Unknown]
